FAERS Safety Report 6851183-5 (Version None)
Quarter: 2010Q3

REPORT INFORMATION
  Report Type: 
  Country: None (occurrence: None)
  Receive Date: 20100716
  Receipt Date: 20100706
  Transmission Date: 20110219
  Serious: Yes (Hospitalization)
  Sender: FDA-Public Use
  Company Number: US-AMGEN-QUU422816

PATIENT
  Sex: Female

DRUGS (1)
  1. ENBREL [Suspect]
     Indication: RHEUMATOID ARTHRITIS
     Route: 058

REACTIONS (7)
  - ARTHRALGIA [None]
  - ARTHROPATHY [None]
  - COMPUTERISED TOMOGRAM ABNORMAL [None]
  - JOINT EFFUSION [None]
  - JOINT SWELLING [None]
  - NERVE INJURY [None]
  - PNEUMONIA [None]
